FAERS Safety Report 25660629 (Version 3)
Quarter: 2025Q4

REPORT INFORMATION
  Report Type: Spontaneous
  Country: US (occurrence: US)
  Receive Date: 20250808
  Receipt Date: 20251010
  Transmission Date: 20260118
  Serious: No
  Sender: BLUEPRINT MEDICINES
  Company Number: US-Blueprint Medicines Corporation-2025-AER-01746

PATIENT
  Age: 75 Year
  Sex: Female

DRUGS (2)
  1. AYVAKIT [Suspect]
     Active Substance: AVAPRITINIB
     Indication: Systemic mastocytosis
     Route: 048
     Dates: start: 20250731
  2. AYVAKIT [Suspect]
     Active Substance: AVAPRITINIB
     Route: 065
     Dates: start: 20250801

REACTIONS (11)
  - Nausea [Unknown]
  - Fatigue [Unknown]
  - Dizziness [Unknown]
  - Swelling [Unknown]
  - Tinnitus [Unknown]
  - Hypersomnia [Unknown]
  - Bone pain [Unknown]
  - Anxiety [Unknown]
  - Negative thoughts [Unknown]
  - Brain fog [Unknown]
  - Headache [Unknown]

NARRATIVE: CASE EVENT DATE: 20250805
